FAERS Safety Report 20049630 (Version 2)
Quarter: 2021Q4

REPORT INFORMATION
  Report Type: Other
  Country: US (occurrence: None)
  Receive Date: 20211109
  Receipt Date: 20211115
  Transmission Date: 20220303
  Serious: No
  Sender: FDA-Public Use
  Company Number: US-ROCHE-2947010

PATIENT
  Sex: Female

DRUGS (16)
  1. OCREVUS [Suspect]
     Active Substance: OCRELIZUMAB
     Indication: Multiple sclerosis
     Dosage: 300 MG/ 10 ML
     Route: 042
  2. CLONAZEPAM [Suspect]
     Active Substance: CLONAZEPAM
     Indication: Anxiety
     Route: 048
  3. ASPIRIN [Concomitant]
     Active Substance: ASPIRIN
  4. WELLBUTRIN [Concomitant]
     Active Substance: BUPROPION HYDROCHLORIDE
  5. MONTELUKAST [Concomitant]
     Active Substance: MONTELUKAST SODIUM
     Dosage: TAKE 1 TABLET AT BEDTIME
     Route: 048
  6. SYNTHROID [Concomitant]
     Active Substance: LEVOTHYROXINE SODIUM
     Route: 048
  7. ESTRADIOL [Concomitant]
     Active Substance: ESTRADIOL
     Route: 048
  8. LACOSAMIDE [Concomitant]
     Active Substance: LACOSAMIDE
     Route: 048
  9. FLUTICASONE [Concomitant]
     Active Substance: FLUTICASONE
  10. DOCUSATE [Concomitant]
     Active Substance: DOCUSATE
     Route: 048
  11. CITALOPRAM [Concomitant]
     Active Substance: CITALOPRAM HYDROBROMIDE
     Route: 048
  12. BUPROPION [Concomitant]
     Active Substance: BUPROPION
     Route: 048
  13. LATANOPROST [Concomitant]
     Active Substance: LATANOPROST
  14. LORATADINE [Concomitant]
     Active Substance: LORATADINE
     Route: 048
  15. MODAFINIL [Concomitant]
     Active Substance: MODAFINIL
     Route: 048
  16. TIMOLOL [Concomitant]
     Active Substance: TIMOLOL

REACTIONS (4)
  - Asthenia [Unknown]
  - Malaise [Unknown]
  - JC polyomavirus test positive [Unknown]
  - Fatigue [Unknown]
